FAERS Safety Report 20450548 (Version 1)
Quarter: 2022Q1

REPORT INFORMATION
  Report Type: Spontaneous
  Country: US (occurrence: None)
  Receive Date: 20220209
  Receipt Date: 20220209
  Transmission Date: 20220423
  Serious: Yes (Hospitalization)
  Sender: FDA-Public Use
  Company Number: None

PATIENT
  Sex: Male

DRUGS (1)
  1. NOVOSEVEN RT [Suspect]
     Active Substance: COAGULATION FACTOR VIIA RECOMBINANT HUMAN
     Indication: Factor VIII deficiency
     Dosage: FREQUENCY : DAILY;? INFUSE 8MG SLOW IV PUSH ONCE DAILY FOR 4 DAYS TO TREAT AN ACUTE?BLEED
     Route: 042
     Dates: start: 20191018

REACTIONS (1)
  - Ligament sprain [None]
